FAERS Safety Report 26140253 (Version 1)
Quarter: 2025Q4

REPORT INFORMATION
  Report Type: Spontaneous
  Country: EU (occurrence: EU)
  Receive Date: 20251210
  Receipt Date: 20251210
  Transmission Date: 20260118
  Serious: Yes (Hospitalization, Disabling, Other)
  Sender: PFIZER
  Company Number: EU-THERAMEX-2023000576

PATIENT
  Age: 48 Year
  Sex: Female
  Weight: 63 kg

DRUGS (105)
  1. ETHINYL ESTRADIOL\GESTODENE [Suspect]
     Active Substance: ETHINYL ESTRADIOL\GESTODENE
     Indication: Product used for unknown indication
     Dosage: NOT SUPPORTED
     Dates: start: 20051213
  2. ETHINYL ESTRADIOL\GESTODENE [Suspect]
     Active Substance: ETHINYL ESTRADIOL\GESTODENE
     Dosage: NOT SUPPORTED
     Dates: start: 20060904
  3. ETHINYL ESTRADIOL\GESTODENE [Suspect]
     Active Substance: ETHINYL ESTRADIOL\GESTODENE
     Dosage: UNK
     Dates: start: 20060921
  4. ETHINYL ESTRADIOL\GESTODENE [Suspect]
     Active Substance: ETHINYL ESTRADIOL\GESTODENE
     Dosage: UNK
     Dates: start: 20050628
  5. ETHINYL ESTRADIOL\GESTODENE [Suspect]
     Active Substance: ETHINYL ESTRADIOL\GESTODENE
     Dates: start: 20060801
  6. ETHINYL ESTRADIOL\GESTODENE [Suspect]
     Active Substance: ETHINYL ESTRADIOL\GESTODENE
     Indication: Product used for unknown indication
     Dates: start: 20050628
  7. ETHINYL ESTRADIOL\GESTODENE [Suspect]
     Active Substance: ETHINYL ESTRADIOL\GESTODENE
     Indication: Product used for unknown indication
     Dosage: UNK
     Dates: start: 20060801
  8. ETHINYL ESTRADIOL\GESTODENE [Suspect]
     Active Substance: ETHINYL ESTRADIOL\GESTODENE
     Dosage: UNK
     Dates: start: 20160801
  9. CYPROTERONE ACETATE [Suspect]
     Active Substance: CYPROTERONE ACETATE
     Indication: Product used for unknown indication
     Dates: start: 20091222, end: 20100329
  10. CYPROTERONE ACETATE [Suspect]
     Active Substance: CYPROTERONE ACETATE
     Dates: start: 20090421, end: 20091221
  11. ESTRADIOL [Suspect]
     Active Substance: ESTRADIOL
     Indication: Product used for unknown indication
     Dosage: UNK
     Dates: start: 2008
  12. ESTRADIOL [Suspect]
     Active Substance: ESTRADIOL
     Dosage: UNK
     Dates: start: 2009
  13. CYPROTERONE ACETATE [Suspect]
     Active Substance: CYPROTERONE ACETATE
     Indication: Product used for unknown indication
     Dosage: UNK
     Dates: start: 20040621
  14. CYPROTERONE ACETATE [Suspect]
     Active Substance: CYPROTERONE ACETATE
     Dosage: UNK
     Dates: start: 20050208
  15. CYPROTERONE ACETATE [Suspect]
     Active Substance: CYPROTERONE ACETATE
     Dosage: UNK
     Dates: start: 20090421
  16. CYPROTERONE ACETATE [Suspect]
     Active Substance: CYPROTERONE ACETATE
     Dosage: TAKING A QUARTER OF A TABLET
     Dates: start: 20090424, end: 200910
  17. CYPROTERONE ACETATE [Suspect]
     Active Substance: CYPROTERONE ACETATE
     Dosage: UNK
     Dates: start: 20091222
  18. CYPROTERONE ACETATE [Suspect]
     Active Substance: CYPROTERONE ACETATE
     Dosage: UNK
     Dates: start: 201003
  19. CYPROTERONE ACETATE [Suspect]
     Active Substance: CYPROTERONE ACETATE
     Dosage: UNK, (TAKING A QUARTER OF A TABLET)
     Dates: start: 20090424, end: 200910
  20. NOMEGESTROL ACETATE [Suspect]
     Active Substance: NOMEGESTROL ACETATE
     Indication: Endometriosis
     Dosage: THERAMEX
     Dates: start: 20040310
  21. NOMEGESTROL ACETATE [Suspect]
     Active Substance: NOMEGESTROL ACETATE
     Indication: Product used for unknown indication
     Dosage: THERAMEX
     Dates: start: 20040621
  22. NOMEGESTROL ACETATE [Suspect]
     Active Substance: NOMEGESTROL ACETATE
     Dosage: THERAMEX
     Dates: start: 20050208
  23. NOMEGESTROL ACETATE [Suspect]
     Active Substance: NOMEGESTROL ACETATE
     Dosage: UNK
     Dates: start: 20050801
  24. NOMEGESTROL ACETATE [Suspect]
     Active Substance: NOMEGESTROL ACETATE
     Dosage: THERAMEX5MG 1 TABLET FROM D15 TO D 24 FOR 6 MONTHS
     Dates: start: 20070213
  25. NOMEGESTROL ACETATE [Suspect]
     Active Substance: NOMEGESTROL ACETATE
     Dosage: THERAMEX1 TABLET FOR 20 DAYS
     Dates: start: 20080626
  26. NOMEGESTROL ACETATE [Suspect]
     Active Substance: NOMEGESTROL ACETATE
     Dosage: THERAMEX1 TABLET FOR 20 DAYS
     Dates: start: 20091002
  27. NOMEGESTROL ACETATE [Suspect]
     Active Substance: NOMEGESTROL ACETATE
     Dosage: THERAMEX10 DAYS A MONTH
     Dates: start: 20100330
  28. NOMEGESTROL ACETATE [Suspect]
     Active Substance: NOMEGESTROL ACETATE
     Dosage: THERAMEX1 TABLET FOR 20 DAYS
     Dates: start: 20100528
  29. NOMEGESTROL ACETATE [Suspect]
     Active Substance: NOMEGESTROL ACETATE
     Dosage: THERAMEX
     Dates: start: 20110214
  30. NOMEGESTROL ACETATE [Suspect]
     Active Substance: NOMEGESTROL ACETATE
     Dosage: THERAMEX
     Dates: start: 20110301
  31. NOMEGESTROL ACETATE [Suspect]
     Active Substance: NOMEGESTROL ACETATE
     Dosage: THERAMEX5MG 1 TABLET FOR 20 DAYS
     Dates: start: 20110531
  32. NOMEGESTROL ACETATE [Suspect]
     Active Substance: NOMEGESTROL ACETATE
     Dosage: THERAMEX
     Dates: start: 20111103
  33. NOMEGESTROL ACETATE [Suspect]
     Active Substance: NOMEGESTROL ACETATE
     Dosage: THERAMEX1 TABLET FOR 20 DAYS
     Dates: start: 20120412
  34. NOMEGESTROL ACETATE [Suspect]
     Active Substance: NOMEGESTROL ACETATE
     Dosage: NOMEGESTROL 5MG MERCK
     Dates: start: 20121212
  35. NOMEGESTROL ACETATE [Suspect]
     Active Substance: NOMEGESTROL ACETATE
     Dosage: UNK
     Dates: start: 20121214
  36. NOMEGESTROL ACETATE [Suspect]
     Active Substance: NOMEGESTROL ACETATE
     Dosage: LUTENYL 5MG TEVA 1 TABLET FOR 20 DAYS
     Dates: start: 20130103
  37. NOMEGESTROL ACETATE [Suspect]
     Active Substance: NOMEGESTROL ACETATE
     Dosage: NOMEGESTROL 5MG MERCK
     Dates: start: 20130111
  38. NOMEGESTROL ACETATE [Suspect]
     Active Substance: NOMEGESTROL ACETATE
     Dosage: NOMEGESTROL 5MG MERCK
     Dates: start: 20130211
  39. NOMEGESTROL ACETATE [Suspect]
     Active Substance: NOMEGESTROL ACETATE
     Dosage: NOMEGESTROL 5MG MERCK
     Dates: start: 20130613
  40. NOMEGESTROL ACETATE [Suspect]
     Active Substance: NOMEGESTROL ACETATE
     Dosage: NOMEGESTROL 5MG MERCK
     Dates: start: 20130724
  41. NOMEGESTROL ACETATE [Suspect]
     Active Substance: NOMEGESTROL ACETATE
     Dosage: NOMEGESTROL 5MG MERCK
     Dates: start: 20131226
  42. NOMEGESTROL ACETATE [Suspect]
     Active Substance: NOMEGESTROL ACETATE
     Dosage: NOMEGESTROL 5MG MERCK
  43. NOMEGESTROL ACETATE [Suspect]
     Active Substance: NOMEGESTROL ACETATE
     Dosage: LUTENYL 5MG TEVA AND NOMEGESTROL 5MG MERCK
     Dates: start: 20141020
  44. NOMEGESTROL ACETATE [Suspect]
     Active Substance: NOMEGESTROL ACETATE
     Dosage: UNK MERCK AND TEVA
     Dates: start: 20151010
  45. NOMEGESTROL ACETATE [Suspect]
     Active Substance: NOMEGESTROL ACETATE
     Dosage: LUTENYL 5MG TEVA AND NOMEGESTROL 5MG MERCK
     Dates: start: 20160315
  46. NOMEGESTROL ACETATE [Suspect]
     Active Substance: NOMEGESTROL ACETATE
     Dosage: LUTENYL 5MG TEVA AND NOMEGESTROL 5MG MERCK
     Dates: start: 20160412
  47. NOMEGESTROL ACETATE [Suspect]
     Active Substance: NOMEGESTROL ACETATE
     Dosage: LUTENYL 5MG TEVA
     Dates: start: 20160419
  48. NOMEGESTROL ACETATE [Suspect]
     Active Substance: NOMEGESTROL ACETATE
     Dosage: LUTENYL 5MG TEVA
     Dates: start: 20160601
  49. NOMEGESTROL ACETATE [Suspect]
     Active Substance: NOMEGESTROL ACETATE
     Dosage: LUTENYL 5MG TEVA
     Dates: start: 20160805
  50. NOMEGESTROL ACETATE [Suspect]
     Active Substance: NOMEGESTROL ACETATE
     Dosage: UNK
     Dates: start: 20160927
  51. NOMEGESTROL ACETATE [Suspect]
     Active Substance: NOMEGESTROL ACETATE
     Dosage: LUTENYL 5MG TEVA
     Dates: start: 20160928
  52. NOMEGESTROL ACETATE [Suspect]
     Active Substance: NOMEGESTROL ACETATE
     Dosage: THERAMEX5MG 1 TABLET FOR 20 DAYS
     Dates: start: 20110531
  53. NOMEGESTROL ACETATE [Suspect]
     Active Substance: NOMEGESTROL ACETATE
     Dosage: THERAMEX5MG 1 TABLET FROM D15 TO D 24 FOR 6 MONTHS
     Dates: start: 20070213
  54. NOMEGESTROL ACETATE [Suspect]
     Active Substance: NOMEGESTROL ACETATE
     Dosage: THERAMEX1 TABLET FOR 20 DAYS
     Dates: start: 20091002
  55. NOMEGESTROL ACETATE [Suspect]
     Active Substance: NOMEGESTROL ACETATE
     Dosage: NOMEGESTROL 5MG MERCK
     Dates: start: 20130211
  56. NOMEGESTROL ACETATE [Suspect]
     Active Substance: NOMEGESTROL ACETATE
     Dosage: THERAMEX1 TABLET FOR 20 DAYS
     Dates: start: 20080626
  57. NOMEGESTROL ACETATE [Suspect]
     Active Substance: NOMEGESTROL ACETATE
     Dosage: THERAMEX1 TABLET FOR 20 DAYS
     Dates: start: 20100528
  58. NOMEGESTROL ACETATE [Suspect]
     Active Substance: NOMEGESTROL ACETATE
     Dosage: LUTENYL 5MG TEVA AND NOMEGESTROL 5MG MERCK
     Dates: start: 20160412
  59. CHLORMADINONE ACETATE [Suspect]
     Active Substance: CHLORMADINONE ACETATE
     Indication: Product used for unknown indication
     Dosage: UNK
     Dates: start: 200306, end: 201604
  60. ETHINYL ESTRADIOL [Suspect]
     Active Substance: ETHINYL ESTRADIOL
     Indication: Product used for unknown indication
     Dosage: UNK
     Dates: start: 20060801
  61. ETHINYL ESTRADIOL [Suspect]
     Active Substance: ETHINYL ESTRADIOL
     Dosage: UNK
     Dates: start: 20160801
  62. BETAHISTINE [Concomitant]
     Active Substance: BETAHISTINE
     Dosage: UNK
  63. NOMEGESTROL ACETATE [Concomitant]
     Active Substance: NOMEGESTROL ACETATE
     Dosage: DISPENSED ON 11-FEB-2013 MERCK
     Dates: start: 20121214
  64. NOMEGESTROL ACETATE [Suspect]
     Active Substance: NOMEGESTROL ACETATE
     Dosage: UNK  (DISPENSED ON 11-FEB-2013) MERCK
     Dates: start: 20151020
  65. NOMEGESTROL ACETATE [Suspect]
     Active Substance: NOMEGESTROL ACETATE
     Indication: Product used for unknown indication
     Dosage: STRENGTH: 5 MG
     Dates: start: 20160315
  66. NOMEGESTROL ACETATE [Suspect]
     Active Substance: NOMEGESTROL ACETATE
     Dosage: 1 DF
     Dates: start: 20131226
  67. NOMEGESTROL ACETATE [Suspect]
     Active Substance: NOMEGESTROL ACETATE
     Dates: start: 20131103
  68. CYPROTERONE ACETATE [Suspect]
     Active Substance: CYPROTERONE ACETATE
     Indication: Product used for unknown indication
     Dosage: UNK
     Dates: start: 20100330
  69. CHLORMADINONE [Suspect]
     Active Substance: CHLORMADINONE
     Indication: Product used for unknown indication
     Dosage: UNK
     Dates: start: 200306, end: 200306
  70. CYPROTERONE [Suspect]
     Active Substance: CYPROTERONE
     Indication: Product used for unknown indication
     Dosage: UNK (THERAMEX)
     Dates: start: 20040621, end: 20050207
  71. CYPROTERONE [Suspect]
     Active Substance: CYPROTERONE
     Dosage: THERAMEX
     Dates: start: 20050208
  72. CYPROTERONE ACETATE [Suspect]
     Active Substance: CYPROTERONE ACETATE
     Indication: Product used for unknown indication
     Dosage: (1/4 TABLET/DAY)
     Dates: start: 2009
  73. ESTRADIOL [Suspect]
     Active Substance: ESTRADIOL
     Dosage: UNK
     Route: 062
     Dates: start: 2008
  74. GESTODENE [Suspect]
     Active Substance: GESTODENE
     Indication: Product used for unknown indication
     Dosage: UNK
     Dates: start: 20060801
  75. GESTODENE [Suspect]
     Active Substance: GESTODENE
     Dosage: UNK
     Dates: start: 20160801
  76. AZELASTINE HYDROCHLORIDE [Suspect]
     Active Substance: AZELASTINE HYDROCHLORIDE
  77. NOMEGESTROL ACETATE [Suspect]
     Active Substance: NOMEGESTROL ACETATE
     Indication: Product used for unknown indication
     Dates: start: 20040310
  78. NOMEGESTROL ACETATE [Suspect]
     Active Substance: NOMEGESTROL ACETATE
     Dosage: 1 DOSAGE FORM, 1 TABLET FOR 20 DAYS
     Dates: start: 20091002
  79. NOMEGESTROL ACETATE [Suspect]
     Active Substance: NOMEGESTROL ACETATE
     Dosage: 1 DOSAGE FORM, 1 TABLET FOR 20 DAYS
     Dates: start: 20100528
  80. NOMEGESTROL ACETATE [Suspect]
     Active Substance: NOMEGESTROL ACETATE
     Dosage: 1 DOSAGE FORM, 1 TABLET FOR 20 DAYS
     Dates: start: 20110531
  81. NOMEGESTROL ACETATE [Suspect]
     Active Substance: NOMEGESTROL ACETATE
     Dosage: 1 DOSAGE FORM, 1 TABLET FOR 20 DAYS
     Dates: start: 20120412
  82. NOMEGESTROL ACETATE [Suspect]
     Active Substance: NOMEGESTROL ACETATE
     Dosage: STRENGTH: 5 MG1 TABLET FOR 20 DAYS
     Dates: start: 20130103
  83. NOMEGESTROL ACETATE [Suspect]
     Active Substance: NOMEGESTROL ACETATE
     Dosage: UNK
     Dates: start: 20141020
  84. NOMEGESTROL ACETATE [Suspect]
     Active Substance: NOMEGESTROL ACETATE
     Dosage: 5 MG
     Dates: start: 20160805
  85. NOMEGESTROL ACETATE [Suspect]
     Active Substance: NOMEGESTROL ACETATE
     Dosage: UNK
  86. NOMEGESTROL ACETATE [Suspect]
     Active Substance: NOMEGESTROL ACETATE
     Dosage: 5 MG
     Dates: start: 20160928
  87. NOMEGESTROL ACETATE [Suspect]
     Active Substance: NOMEGESTROL ACETATE
     Dosage: UNK
     Dates: start: 20160412
  88. NOMEGESTROL ACETATE [Suspect]
     Active Substance: NOMEGESTROL ACETATE
     Indication: Product used for unknown indication
     Dosage: UNK
     Dates: start: 20040621
  89. NOMEGESTROL ACETATE [Suspect]
     Active Substance: NOMEGESTROL ACETATE
     Dosage: UNK
     Dates: start: 20050208
  90. NOMEGESTROL ACETATE [Suspect]
     Active Substance: NOMEGESTROL ACETATE
     Dosage: UNK
     Dates: start: 20060801
  91. NOMEGESTROL ACETATE [Suspect]
     Active Substance: NOMEGESTROL ACETATE
     Dosage: 1 DOSAGE FORM, (1 TABLET FROM D15 TO D24 FOR 6 MONTHS)
     Dates: start: 20070213
  92. NOMEGESTROL ACETATE [Suspect]
     Active Substance: NOMEGESTROL ACETATE
     Dosage: 1 DOSAGE FORM, 1 TABLET FOR 20 DAYS
     Dates: start: 20080626
  93. NOMEGESTROL ACETATE [Suspect]
     Active Substance: NOMEGESTROL ACETATE
     Dosage: UNK
     Dates: start: 20110214
  94. NOMEGESTROL ACETATE [Suspect]
     Active Substance: NOMEGESTROL ACETATE
     Dosage: UNK
     Dates: start: 20110301
  95. NOMEGESTROL ACETATE [Suspect]
     Active Substance: NOMEGESTROL ACETATE
     Dosage: UNK
     Dates: start: 20111103
  96. NOMEGESTROL ACETATE [Suspect]
     Active Substance: NOMEGESTROL ACETATE
     Dosage: UNK TEVA. 5 MILLIGRAMS
     Dates: start: 20160419
  97. NOMEGESTROL ACETATE [Suspect]
     Active Substance: NOMEGESTROL ACETATE
     Dosage: STRENGTH: 5 MG
     Dates: start: 20151020
  98. NOMEGESTROL ACETATE [Suspect]
     Active Substance: NOMEGESTROL ACETATE
     Dosage: 10 DAYS A MONTH
     Dates: start: 20100330
  99. NOMEGESTROL ACETATE [Suspect]
     Active Substance: NOMEGESTROL ACETATE
     Dosage: UNK
     Dates: end: 20160927
  100. NOMEGESTROL ACETATE [Suspect]
     Active Substance: NOMEGESTROL ACETATE
     Dosage: UNK
     Dates: start: 20160927
  101. NOMEGESTROL ACETATE [Suspect]
     Active Substance: NOMEGESTROL ACETATE
     Dosage: UNK, 5 MILLIGRAMS
     Dates: start: 20160601
  102. NOMEGESTROL ACETATE [Suspect]
     Active Substance: NOMEGESTROL ACETATE
     Dosage: UNK, 5 MILLIGRAMS
     Dates: start: 20130211
  103. NOMEGESTROL ACETATE [Suspect]
     Active Substance: NOMEGESTROL ACETATE
     Dosage: UNK, 5 MILLIGRAMS
     Dates: start: 20050801
  104. CHLORMADINONE ACETATE [Suspect]
     Active Substance: CHLORMADINONE ACETATE
     Indication: Product used for unknown indication
     Dosage: UNK
     Dates: start: 200306, end: 200306
  105. NOMEGESTROL [Suspect]
     Active Substance: NOMEGESTROL
     Dosage: UNK  (DISPENSED ON 11-FEB-2013) MERCK
     Dates: start: 20121214

REACTIONS (67)
  - Meningioma [Recovered/Resolved with Sequelae]
  - Deafness [Unknown]
  - Retrograde amnesia [Unknown]
  - Narcolepsy [Unknown]
  - Vestibular disorder [Unknown]
  - Ear canal injury [Unknown]
  - Disturbance in attention [Unknown]
  - Ear pain [Unknown]
  - Temporomandibular pain and dysfunction syndrome [Unknown]
  - Scar pain [Unknown]
  - Meniere^s disease [Unknown]
  - Dysdiadochokinesis [Unknown]
  - Gait disturbance [Unknown]
  - Anterograde amnesia [Unknown]
  - Condition aggravated [Unknown]
  - Choking [Unknown]
  - Cognitive disorder [Unknown]
  - Alopecia [Not Recovered/Not Resolved]
  - Weight increased [Unknown]
  - Taste disorder [Unknown]
  - Nausea [Unknown]
  - Parosmia [Unknown]
  - Phonophobia [Unknown]
  - Photophobia [Unknown]
  - Hyperacusis [Unknown]
  - Temporomandibular pain and dysfunction syndrome [Unknown]
  - Psychomotor retardation [Unknown]
  - Claustrophobia [Unknown]
  - Fatigue [Unknown]
  - Dyskinesia [Unknown]
  - Trigeminal neuralgia [Unknown]
  - Fibromyalgia [Unknown]
  - Aphasia [Unknown]
  - Apraxia [Unknown]
  - Cervicobrachial syndrome [Unknown]
  - Neuralgia [Unknown]
  - Insomnia [Unknown]
  - Headache [Recovered/Resolved]
  - Occipital neuralgia [Unknown]
  - Neuroma [Unknown]
  - Mastication disorder [Recovered/Resolved]
  - Depression [Unknown]
  - Drug intolerance [Unknown]
  - Hyperacusis [Unknown]
  - Sleep disorder [Unknown]
  - Bradyphrenia [Unknown]
  - Oversensing [Unknown]
  - Executive dysfunction [Unknown]
  - Libido decreased [Unknown]
  - Emotional distress [Unknown]
  - Xanthelasma [Unknown]
  - Gingival pain [Unknown]
  - Dysstasia [Unknown]
  - Misophonia [Unknown]
  - Temporomandibular pain and dysfunction syndrome [Unknown]
  - Vision blurred [Unknown]
  - Electric shock sensation [Unknown]
  - Fatigue [Unknown]
  - Bradykinesia [Unknown]
  - Sleep attacks [Unknown]
  - Nystagmus [Unknown]
  - Photosensitivity reaction [Unknown]
  - Dysphagia [Unknown]
  - Drug intolerance [Unknown]
  - Bronchitis [Unknown]
  - Eating disorder [Unknown]
  - Pain in jaw [Unknown]

NARRATIVE: CASE EVENT DATE: 20100101
